FAERS Safety Report 4625543-7 (Version None)
Quarter: 2005Q2

REPORT INFORMATION
  Report Type: 
  Country: None (occurrence: None)
  Receive Date: 20050401
  Receipt Date: 20050328
  Transmission Date: 20051028
  Serious: Yes (Life-Threatening, Hospitalization, Disabling)
  Sender: FDA-Public Use
  Company Number: US-MERCK-0503USA04866

PATIENT
  Age: 44 Year
  Sex: Female

DRUGS (2)
  1. FOSAMAX [Suspect]
     Indication: OSTEOPENIA
     Route: 048
     Dates: end: 20000101
  2. FOSAMAX [Suspect]
     Route: 048
     Dates: start: 20040101, end: 20041101

REACTIONS (1)
  - THYROID GLAND CANCER [None]
